FAERS Safety Report 4984231-8 (Version None)
Quarter: 2006Q2

REPORT INFORMATION
  Report Type: 
  Country: None (occurrence: None)
  Receive Date: 20060420
  Receipt Date: 20060411
  Transmission Date: 20061013
  Serious: Yes (Hospitalization)
  Sender: FDA-Public Use
  Company Number: 200610567GDS

PATIENT
  Age: 59 Year
  Sex: Female

DRUGS (3)
  1. CIPRO [Suspect]
     Indication: BRONCHITIS CHRONIC
     Dosage: 1000 MG, TOTAL DAILY; ORAL
     Route: 048
     Dates: start: 19940328, end: 19940330
  2. DILANTIN [Concomitant]
  3. FOLIC ACID [Concomitant]

REACTIONS (2)
  - DEHYDRATION [None]
  - DIARRHOEA [None]
